FAERS Safety Report 9004366 (Version 1)
Quarter: 2013Q1

REPORT INFORMATION
  Report Type: Spontaneous
  Country: US (occurrence: None)
  Receive Date: 20130104
  Receipt Date: 20130104
  Transmission Date: 20140127
  Serious: No
  Sender: FDA-Public Use
  Company Number: None

PATIENT
  Age: 48 Year
  Sex: Male
  Weight: 154.22 kg

DRUGS (2)
  1. HEPARIN [Suspect]
  2. LOVINOX [Suspect]

REACTIONS (2)
  - Depression [None]
  - Convulsion [None]
